FAERS Safety Report 13100903 (Version 1)
Quarter: 2017Q1

REPORT INFORMATION
  Report Type: Spontaneous
  Country: US (occurrence: US)
  Receive Date: 20170110
  Receipt Date: 20170110
  Transmission Date: 20170428
  Serious: No
  Sender: FDA-Public Use
  Company Number: US-ASTRAZENECA-2016SF32498

PATIENT
  Age: 683 Month
  Sex: Female
  Weight: 52.2 kg

DRUGS (4)
  1. TUDORZA PRESSAIR [Suspect]
     Active Substance: ACLIDINIUM BROMIDE
     Indication: EMPHYSEMA
     Dosage: ONE PUFF TWICE DAILY 12 HOURS APART
     Route: 055
     Dates: start: 2015
  2. ADVAIR HFA [Concomitant]
     Active Substance: FLUTICASONE PROPIONATE\SALMETEROL XINAFOATE
     Indication: EMPHYSEMA
     Dosage: TWO TIMES A DAY
     Dates: start: 20160203
  3. TUDORZA PRESSAIR [Suspect]
     Active Substance: ACLIDINIUM BROMIDE
     Indication: EMPHYSEMA
     Route: 055
     Dates: start: 20161212
  4. PROAIR HFA [Concomitant]
     Active Substance: ALBUTEROL SULFATE
     Dosage: AS REQUIRED
     Route: 055

REACTIONS (7)
  - Feeling abnormal [Not Recovered/Not Resolved]
  - Asthenia [Unknown]
  - Device malfunction [Unknown]
  - Apathy [Recovered/Resolved]
  - Drug dose omission [Unknown]
  - Nervousness [Unknown]
  - Dyspnoea [Unknown]

NARRATIVE: CASE EVENT DATE: 201602
